FAERS Safety Report 15418217 (Version 6)
Quarter: 2018Q4

REPORT INFORMATION
  Report Type: Spontaneous
  Country: GB (occurrence: GB)
  Receive Date: 20180924
  Receipt Date: 20181128
  Transmission Date: 20190204
  Serious: Yes (Other)
  Sender: FDA-Public Use
  Company Number: GB-PFIZER INC-2018381759

PATIENT
  Age: 4 Decade
  Sex: Male

DRUGS (24)
  1. MEROPENEM. [Concomitant]
     Active Substance: MEROPENEM
     Indication: LUNG DISORDER
  2. TIGECYCLINE. [Concomitant]
     Active Substance: TIGECYCLINE
     Indication: MYCOBACTERIUM ABSCESSUS INFECTION
  3. CLOFAZIMINE [Concomitant]
     Active Substance: CLOFAZIMINE
     Indication: MYCOBACTERIUM ABSCESSUS INFECTION
  4. AZITHROMYCIN ANHYDROUS. [Suspect]
     Active Substance: AZITHROMYCIN ANHYDROUS
     Indication: LUNG DISORDER
     Dosage: 500 MG, 1X/DAY
     Route: 048
  5. MINOCYCLINE [Suspect]
     Active Substance: MINOCYCLINE\MINOCYCLINE HYDROCHLORIDE
     Indication: MYCOBACTERIUM ABSCESSUS INFECTION
  6. MEROPENEM. [Concomitant]
     Active Substance: MEROPENEM
     Indication: MYCOBACTERIUM ABSCESSUS INFECTION
  7. CLOFAZIMINE [Concomitant]
     Active Substance: CLOFAZIMINE
     Indication: LUNG DISORDER
     Dosage: 100 MG, 1X/DAY
     Route: 048
  8. AZITHROMYCIN ANHYDROUS. [Suspect]
     Active Substance: AZITHROMYCIN ANHYDROUS
     Indication: MYCOBACTERIUM ABSCESSUS INFECTION
  9. MINOCYCLINE [Suspect]
     Active Substance: MINOCYCLINE\MINOCYCLINE HYDROCHLORIDE
     Indication: LUNG DISORDER
     Dosage: 100 MG, 2X/DAY
     Route: 048
  10. MINOCYCLINE [Suspect]
     Active Substance: MINOCYCLINE\MINOCYCLINE HYDROCHLORIDE
     Indication: CYSTIC FIBROSIS
  11. TIGECYCLINE. [Concomitant]
     Active Substance: TIGECYCLINE
     Indication: LUNG DISORDER
     Dosage: 50 MG, 2X/DAY
  12. CLOFAZIMINE [Concomitant]
     Active Substance: CLOFAZIMINE
     Indication: CYSTIC FIBROSIS
  13. AZITHROMYCIN ANHYDROUS. [Suspect]
     Active Substance: AZITHROMYCIN ANHYDROUS
     Indication: CYSTIC FIBROSIS
     Dosage: 250 MG, 1X/DAY (ORAL AND NEBULISED)
     Route: 048
  14. TIGECYCLINE. [Concomitant]
     Active Substance: TIGECYCLINE
     Indication: CYSTIC FIBROSIS
  15. MOXIFLOXACIN. [Concomitant]
     Active Substance: MOXIFLOXACIN
     Indication: LUNG DISORDER
     Dosage: 400 MG, 1X/DAY
  16. MOXIFLOXACIN. [Concomitant]
     Active Substance: MOXIFLOXACIN
     Indication: CYSTIC FIBROSIS
  17. MOXIFLOXACIN. [Concomitant]
     Active Substance: MOXIFLOXACIN
     Indication: MYCOBACTERIUM ABSCESSUS INFECTION
  18. AMIKACIN SULFATE. [Suspect]
     Active Substance: AMIKACIN SULFATE
     Indication: CYSTIC FIBROSIS
     Dosage: 500 MG, 2X/DAY (NEBULISED)
     Route: 055
  19. AMIKACIN SULFATE. [Suspect]
     Active Substance: AMIKACIN SULFATE
     Indication: MYCOBACTERIUM ABSCESSUS INFECTION
  20. IMIPENEM [Suspect]
     Active Substance: IMIPENEM
     Indication: LUNG DISORDER
     Dosage: UNK (STOPPED AT DAY 8)
  21. IMIPENEM [Suspect]
     Active Substance: IMIPENEM
     Indication: CYSTIC FIBROSIS
  22. AMIKACIN SULFATE. [Suspect]
     Active Substance: AMIKACIN SULFATE
     Indication: LUNG DISORDER
     Dosage: 525 MG, 2X/DAY (TOTAL OF 29.4 G)
     Route: 042
  23. IMIPENEM [Suspect]
     Active Substance: IMIPENEM
     Indication: MYCOBACTERIUM ABSCESSUS INFECTION
  24. MEROPENEM. [Concomitant]
     Active Substance: MEROPENEM
     Indication: CYSTIC FIBROSIS
     Dosage: 2 G, 3X/DAY

REACTIONS (5)
  - Acoustic neuroma [Not Recovered/Not Resolved]
  - Product use issue [Unknown]
  - Facial paralysis [Recovered/Resolved]
  - Ototoxicity [Not Recovered/Not Resolved]
  - Deafness unilateral [Not Recovered/Not Resolved]
